FAERS Safety Report 23866098 (Version 1)
Quarter: 2024Q2

REPORT INFORMATION
  Report Type: Report from Study
  Country: ES (occurrence: ES)
  Receive Date: 20240517
  Receipt Date: 20240517
  Transmission Date: 20240716
  Serious: Yes (Hospitalization, Other)
  Sender: FDA-Public Use
  Company Number: ES-SUN PHARMACEUTICAL INDUSTRIES LTD-2024R1-446252

PATIENT
  Sex: Male
  Weight: 1.75 kg

DRUGS (2)
  1. MESALAMINE [Suspect]
     Active Substance: MESALAMINE
     Indication: Colitis ulcerative
     Dosage: UNK
     Route: 064
  2. TOFACITINIB [Suspect]
     Active Substance: TOFACITINIB
     Indication: Colitis ulcerative
     Dosage: 5 MILLIGRAM, BID
     Route: 064

REACTIONS (6)
  - Premature baby [Unknown]
  - Apnoea [Recovered/Resolved]
  - Bradycardia [Recovered/Resolved]
  - Low birth weight baby [Unknown]
  - Foetal exposure during pregnancy [Unknown]
  - Polydactyly [Unknown]
